FAERS Safety Report 19642995 (Version 2)
Quarter: 2021Q3

REPORT INFORMATION
  Report Type: Report from Study
  Country: AR (occurrence: AR)
  Receive Date: 20210731
  Receipt Date: 20210813
  Transmission Date: 20211014
  Serious: Yes (Hospitalization, Other)
  Sender: FDA-Public Use
  Company Number: NVSC2021AR169332

PATIENT
  Age: 45 Year
  Sex: Male

DRUGS (4)
  1. GALVUS MET [Suspect]
     Active Substance: METFORMIN HYDROCHLORIDE\VILDAGLIPTIN
     Indication: TYPE 2 DIABETES MELLITUS
     Dosage: 2 DF OF (50 0/1000), QD, (ONE IN THE MORNING AND ONE AT NIGHT)
     Route: 065
     Dates: start: 2012, end: 201901
  2. GALVUS MET [Suspect]
     Active Substance: METFORMIN HYDROCHLORIDE\VILDAGLIPTIN
     Dosage: UNK
     Route: 065
  3. INSULIN [Concomitant]
     Active Substance: INSULIN NOS
     Indication: PRODUCT USED FOR UNKNOWN INDICATION
     Dosage: UNK
     Route: 065
  4. GALVUS MET [Suspect]
     Active Substance: METFORMIN HYDROCHLORIDE\VILDAGLIPTIN
     Dosage: 2 DF OF (50 0/1000), QD, (ONE IN THE MORNING AND ONE AT NIGHT)
     Route: 065
     Dates: start: 201903

REACTIONS (13)
  - Fear [Unknown]
  - Product availability issue [Unknown]
  - Type 1 diabetes mellitus [Unknown]
  - Bile duct stone [Recovered/Resolved]
  - Infection [Recovered/Resolved]
  - Agitation [Unknown]
  - Vomiting [Unknown]
  - Diabetic metabolic decompensation [Recovered/Resolved]
  - Cholelithiasis [Recovered/Resolved]
  - Blood glucose increased [Recovered/Resolved]
  - Biliary obstruction [Unknown]
  - Yellow skin [Recovered/Resolved]
  - Pyrexia [Unknown]

NARRATIVE: CASE EVENT DATE: 2018
